FAERS Safety Report 6712800-3 (Version None)
Quarter: 2010Q2

REPORT INFORMATION
  Report Type: 
  Country: None (occurrence: None)
  Receive Date: 20100506
  Receipt Date: 20090707
  Transmission Date: 20101027
  Serious: Yes (Hospitalization)
  Sender: FDA-Public Use
  Company Number: A0789182A

PATIENT
  Age: 64 Year
  Sex: Female

DRUGS (2)
  1. AUGMENTIN [Suspect]
     Indication: PNEUMONIA
     Route: 065
     Dates: start: 20090325, end: 20090327
  2. BETASERON [Suspect]
     Indication: MULTIPLE SCLEROSIS
     Route: 058
     Dates: start: 20090112

REACTIONS (1)
  - CLOSTRIDIUM DIFFICILE COLITIS [None]
